FAERS Safety Report 13166139 (Version 1)
Quarter: 2017Q1

REPORT INFORMATION
  Report Type: Spontaneous
  Country: US (occurrence: US)
  Receive Date: 20170127
  Receipt Date: 20170127
  Transmission Date: 20170428
  Serious: Yes (Hospitalization)
  Sender: FDA-Public Use
  Company Number: None

PATIENT
  Age: 61 Year
  Sex: Male
  Weight: 67.19 kg

DRUGS (4)
  1. DIVALPROOEX SODIUM 500 MG ER [Suspect]
     Active Substance: DIVALPROEX SODIUM
     Indication: IMPULSE-CONTROL DISORDER
     Route: 048
     Dates: start: 20170119, end: 20170126
  2. PHENOBARBITAL. [Concomitant]
     Active Substance: PHENOBARBITAL
  3. DIVALPROOEX SODIUM 500 MG ER [Suspect]
     Active Substance: DIVALPROEX SODIUM
     Indication: SEIZURE
     Route: 048
     Dates: start: 20170119, end: 20170126
  4. LACOSAMIDE. [Concomitant]
     Active Substance: LACOSAMIDE

REACTIONS (7)
  - Gait disturbance [None]
  - Asterixis [None]
  - Irritability [None]
  - Salivary hypersecretion [None]
  - Somnolence [None]
  - Hyperammonaemia [None]
  - Seizure [None]

NARRATIVE: CASE EVENT DATE: 20170126
